FAERS Safety Report 12080268 (Version 1)
Quarter: 2016Q1

REPORT INFORMATION
  Report Type: Spontaneous
  Country: US (occurrence: None)
  Receive Date: 20160212
  Receipt Date: 20160212
  Transmission Date: 20160526
  Serious: No
  Sender: FDA-Public Use
  Company Number: None

PATIENT
  Age: 37 Year
  Sex: Female

DRUGS (20)
  1. HYDROXYCHLOR [Concomitant]
     Active Substance: HYDROXYCHLOROQUINE
  2. CLOBETASOL [Concomitant]
     Active Substance: CLOBETASOL
  3. MONTELULAST [Concomitant]
  4. BENLYSTA [Suspect]
     Active Substance: BELIMUMAB
     Indication: SYSTEMIC LUPUS ERYTHEMATOSUS
     Dosage: EV ERY 4 WEEKS
     Route: 042
     Dates: start: 201501, end: 201602
  5. HYDROCO/APAP [Concomitant]
     Active Substance: ACETAMINOPHEN\HYDROCODONE
  6. SUMATRIPTAN. [Concomitant]
     Active Substance: SUMATRIPTAN
  7. PROPRANOLOL [Concomitant]
     Active Substance: PROPRANOLOL\PROPRANOLOL HYDROCHLORIDE
  8. NITROFURANTIN [Concomitant]
     Active Substance: NITROFURANTOIN
  9. CEVIMELINE. [Concomitant]
     Active Substance: CEVIMELINE
  10. LEUCOVOR [Concomitant]
  11. LYRICA [Concomitant]
     Active Substance: PREGABALIN
  12. PANTOPRAZOLE [Concomitant]
     Active Substance: PANTOPRAZOLE SODIUM
  13. CLONAZEPAM. [Concomitant]
     Active Substance: CLONAZEPAM
  14. LEVOCETIRIZI [Concomitant]
  15. BENLYSTA [Suspect]
     Active Substance: BELIMUMAB
     Indication: SYSTEMIC LUPUS ERYTHEMATOSUS
     Dosage: EVERY 4 WEEKS
     Route: 042
     Dates: start: 201501, end: 201602
  16. BUSPIRONE [Concomitant]
     Active Substance: BUSPIRONE HYDROCHLORIDE
  17. HYOSCYAMINE. [Concomitant]
     Active Substance: HYOSCYAMINE
  18. METHOTREXATE [Concomitant]
     Active Substance: METHOTREXATE
  19. ZOLPIDEM [Concomitant]
     Active Substance: ZOLPIDEM\ZOLPIDEM TARTRATE
  20. GAVILYTE [Concomitant]

REACTIONS (2)
  - Condition aggravated [None]
  - Systemic lupus erythematosus [None]

NARRATIVE: CASE EVENT DATE: 2015
